FAERS Safety Report 5042066-4 (Version None)
Quarter: 2006Q2

REPORT INFORMATION
  Report Type: 
  Country: None (occurrence: None)
  Receive Date: 20060630
  Receipt Date: 20060619
  Transmission Date: 20061013
  Serious: Yes (Death)
  Sender: FDA-Public Use
  Company Number: 2006077838

PATIENT
  Age: 80 Year
  Sex: Female

DRUGS (8)
  1. VFEND [Suspect]
     Indication: BRONCHOPULMONARY ASPERGILLOSIS
     Dosage: SEE IMAGE,  ORAL
     Route: 048
     Dates: start: 20050720, end: 20050723
  2. VFEND [Suspect]
     Indication: BRONCHOPULMONARY ASPERGILLOSIS
     Dosage: SEE IMAGE,  ORAL
     Route: 048
     Dates: start: 20050724, end: 20050731
  3. VFEND [Suspect]
     Indication: BRONCHOPULMONARY ASPERGILLOSIS
     Dosage: SEE IMAGE,  ORAL
     Route: 048
     Dates: start: 20050801, end: 20050915
  4. FIRSTCIN                       (CEFOZOPRAN HYDROCHLORIDE) [Concomitant]
  5. CARBENIN                       (BETAMIPRON, PANIPENEM) [Concomitant]
  6. SULFAMETHOXAZOLE + TRIMETHOPRIM [Concomitant]
  7. FAMOTIDINE [Concomitant]
  8. DEPAS                      (ETIZOLAM) [Concomitant]

REACTIONS (1)
  - PHOTOPHOBIA [None]
